FAERS Safety Report 16265052 (Version 1)
Quarter: 2019Q2

REPORT INFORMATION
  Report Type: Spontaneous
  Country: US (occurrence: US)
  Receive Date: 20190502
  Receipt Date: 20190502
  Transmission Date: 20190711
  Serious: No
  Sender: FDA-Public Use
  Company Number: US-BAYER-2019-085563

PATIENT
  Sex: Female

DRUGS (4)
  1. MIRENA [Suspect]
     Active Substance: LEVONORGESTREL
     Indication: PERINEAL PAIN
  2. MIRENA [Suspect]
     Active Substance: LEVONORGESTREL
     Indication: PELVIC PAIN
  3. MIRENA [Suspect]
     Active Substance: LEVONORGESTREL
     Indication: DYSMENORRHOEA
     Dosage: 20 MCG/24HR, CONT
     Route: 015
  4. MIRENA [Suspect]
     Active Substance: LEVONORGESTREL
     Indication: ENDOMETRIOSIS

REACTIONS (2)
  - Off label use of device [None]
  - Therapeutic product ineffective for unapproved indication [None]
